FAERS Safety Report 7641102-6 (Version None)
Quarter: 2011Q3

REPORT INFORMATION
  Report Type: 
  Country: None (occurrence: None)
  Receive Date: 20110727
  Receipt Date: 20110727
  Transmission Date: 20111222
  Serious: Yes (Death)
  Sender: FDA-Public Use
  Company Number: None

PATIENT
  Age: 49 Year
  Sex: Male

DRUGS (7)
  1. FENTANYL [Concomitant]
  2. REVLIMID [Suspect]
     Indication: MULTIPLE MYELOMA
     Dosage: REVLIMID 25MG DAILY X21D/28D ORALLY
     Route: 048
     Dates: start: 20090301, end: 20090801
  3. REVLIMID [Suspect]
     Indication: MULTIPLE MYELOMA
     Dosage: REVLIMID 25MG DAILY X21D/28D ORALLY
     Route: 048
     Dates: start: 20100501, end: 20110301
  4. MORPHINE [Concomitant]
  5. OXYCODONE HCL [Concomitant]
  6. HALOPERIDOL [Concomitant]
  7. ONDANSETRON [Concomitant]

REACTIONS (6)
  - RESTLESSNESS [None]
  - RESPIRATORY DISTRESS [None]
  - SEPSIS [None]
  - MOANING [None]
  - PNEUMONIA [None]
  - PYREXIA [None]
